FAERS Safety Report 10152234 (Version 5)
Quarter: 2014Q4

REPORT INFORMATION
  Report Type: Report from Study
  Country: JP (occurrence: JP)
  Receive Date: 20140505
  Receipt Date: 20141224
  Transmission Date: 20150528
  Serious: Yes (Hospitalization)
  Sender: FDA-Public Use
  Company Number: JP-SA-THYM-1002850

PATIENT
  Age: 25 Year
  Sex: Female
  Weight: 52.76 kg

DRUGS (14)
  1. THYMOGLOBULINE [Suspect]
     Active Substance: LAPINE T-LYMPHOCYTE IMMUNE GLOBULIN
     Indication: APLASTIC ANAEMIA
     Dosage: 200 MG, QD
     Route: 042
     Dates: start: 20110808, end: 20110811
  2. THYMOGLOBULINE [Suspect]
     Active Substance: LAPINE T-LYMPHOCYTE IMMUNE GLOBULIN
     Indication: APLASTIC ANAEMIA
     Route: 042
     Dates: start: 20110812, end: 20110812
  3. SOLU-MEDROL [Suspect]
     Active Substance: METHYLPREDNISOLONE SODIUM SUCCINATE
     Indication: PROPHYLAXIS
     Route: 065
     Dates: start: 20110808, end: 20110812
  4. OZEX [Concomitant]
     Active Substance: TOSUFLOXACIN TOSYLATE
     Indication: INFECTION PROPHYLAXIS
     Dates: start: 20110808, end: 20110926
  5. DIFLUCAN [Concomitant]
     Active Substance: FLUCONAZOLE
     Indication: INFECTION PROPHYLAXIS
     Route: 048
     Dates: start: 20110808
  6. GASTER [Concomitant]
     Active Substance: FAMOTIDINE
     Indication: PROPHYLAXIS
     Route: 048
     Dates: start: 20110808, end: 20111101
  7. SOLU-CORTEF [Concomitant]
     Active Substance: HYDROCORTISONE SODIUM SUCCINATE
     Indication: ALLERGIC TRANSFUSION REACTION
     Dates: start: 20110808, end: 20110918
  8. CHLOR-TRIMETON [Concomitant]
     Active Substance: CHLORPHENIRAMINE MALEATE
     Indication: ALLERGIC TRANSFUSION REACTION
     Dates: start: 20110808, end: 20111011
  9. AZUNOL [Concomitant]
     Active Substance: SODIUM GUALENATE
     Indication: ORAL HERPES
     Dosage: LABIAL ROUTE
     Dates: start: 20110803, end: 20110819
  10. WYPAX [Concomitant]
     Active Substance: LORAZEPAM
     Indication: PROPHYLAXIS
     Dates: start: 20110814, end: 20110814
  11. BAKTAR [Concomitant]
     Active Substance: SULFAMETHOXAZOLE\TRIMETHOPRIM
     Indication: INFECTION PROPHYLAXIS
     Dates: start: 20110809
  12. PREDONINE [Concomitant]
     Active Substance: PREDNISOLONE\PREDNISOLONE ACETATE\PREDNISOLONE SODIUM SUCCINATE
     Indication: PROPHYLAXIS
     Dates: start: 20110813, end: 20110904
  13. NEORAL [Suspect]
     Active Substance: CYCLOSPORINE
     Indication: APLASTIC ANAEMIA
     Route: 065
     Dates: start: 20110808
  14. VALTREX [Concomitant]
     Active Substance: VALACYCLOVIR HYDROCHLORIDE
     Indication: ORAL HERPES
     Dates: start: 20110805, end: 20110927

REACTIONS (11)
  - Cytomegalovirus viraemia [Recovered/Resolved]
  - Epstein-Barr virus infection [Recovering/Resolving]
  - Constipation [Recovering/Resolving]
  - Insomnia [Recovered/Resolved]
  - Hepatic function abnormal [Recovered/Resolved]
  - Hypersensitivity [Recovered/Resolved]
  - Bone marrow failure [Recovering/Resolving]
  - Nausea [Recovering/Resolving]
  - Headache [Recovering/Resolving]
  - Vomiting [Recovered/Resolved]
  - Pyrexia [Recovering/Resolving]

NARRATIVE: CASE EVENT DATE: 20110808
